FAERS Safety Report 6448874-7 (Version None)
Quarter: 2009Q4

REPORT INFORMATION
  Report Type: 
  Country: None (occurrence: None)
  Receive Date: 20091120
  Receipt Date: 20091116
  Transmission Date: 20100525
  Serious: Yes (Other)
  Sender: FDA-Public Use
  Company Number: US-PURDUE-USA-2009-0040904

PATIENT
  Sex: Female

DRUGS (4)
  1. OXYCONTIN [Suspect]
     Indication: PAIN
     Dosage: 80 MG, BID
     Route: 048
     Dates: end: 20090801
  2. OXYCONTIN [Suspect]
     Dosage: 80 UNK, UNK
     Dates: start: 20091113
  3. OXYIR CAPSULES 5 MG [Suspect]
     Indication: PAIN
     Dosage: 40 MG, DAILY
     Route: 048
     Dates: end: 20090801
  4. INSULIN [Concomitant]

REACTIONS (5)
  - CLAVICLE FRACTURE [None]
  - CONCUSSION [None]
  - FATIGUE [None]
  - ROAD TRAFFIC ACCIDENT [None]
  - WOUND [None]
